FAERS Safety Report 16421115 (Version 1)
Quarter: 2020Q3

REPORT INFORMATION
  Report Type: Report from Study
  Country: PL (occurrence: PL)
  Receive Date: 20190612
  Receipt Date: 20190612
  Transmission Date: 20201105
  Serious: Yes (Hospitalization)
  Sender: FDA-Public Use
  Company Number: PL-JNJFOC-20190609466

PATIENT
  Age: 55 Year
  Sex: Female
  Weight: 82 kg

DRUGS (2)
  1. ESKETAMINE [Suspect]
     Active Substance: ESKETAMINE
     Indication: DEPRESSION
     Route: 045
     Dates: start: 20170510
  2. ESKETAMINE [Suspect]
     Active Substance: ESKETAMINE
     Route: 045

REACTIONS (1)
  - Coronary artery disease [Recovering/Resolving]

NARRATIVE: CASE EVENT DATE: 20190415
